FAERS Safety Report 19892704 (Version 1)
Quarter: 2021Q3

REPORT INFORMATION
  Report Type: Spontaneous
  Country: US (occurrence: US)
  Receive Date: 20210928
  Receipt Date: 20210928
  Transmission Date: 20211014
  Serious: Yes (Hospitalization)
  Sender: FDA-Public Use
  Company Number: US-ELI_LILLY_AND_COMPANY-US202109007561

PATIENT
  Sex: Male

DRUGS (4)
  1. BASAGLAR [Suspect]
     Active Substance: INSULIN GLARGINE
     Dosage: 18 U, DAILY (EACH NIGHT)
     Route: 058
  2. HUMALOG [Suspect]
     Active Substance: INSULIN LISPRO
     Dosage: 8 U, OTHER (2?8 UNITS BETWEEN MEALS)
     Route: 058
  3. HUMALOG [Suspect]
     Active Substance: INSULIN LISPRO
     Indication: TYPE 2 DIABETES MELLITUS
     Dosage: 8 U, OTHER (2?8 UNITS BETWEEN MEALS)
     Route: 058
  4. BASAGLAR [Suspect]
     Active Substance: INSULIN GLARGINE
     Indication: TYPE 2 DIABETES MELLITUS
     Dosage: 18 U, DAILY (EACH NIGHT)
     Route: 058

REACTIONS (7)
  - Urinary tract infection [Recovering/Resolving]
  - Nephrolithiasis [Recovering/Resolving]
  - Diabetic neuropathy [Not Recovered/Not Resolved]
  - Blood glucose increased [Recovering/Resolving]
  - Decreased appetite [Unknown]
  - Depression [Unknown]
  - Diabetic retinopathy [Not Recovered/Not Resolved]

NARRATIVE: CASE EVENT DATE: 2019
